FAERS Safety Report 5039137-5 (Version None)
Quarter: 2006Q2

REPORT INFORMATION
  Report Type: 
  Country: None (occurrence: None)
  Receive Date: 20060629
  Receipt Date: 20060627
  Transmission Date: 20061013
  Serious: Yes (Hospitalization)
  Sender: FDA-Public Use
  Company Number: US-GLAXOSMITHKLINE-A0610496A

PATIENT
  Age: 73 Year
  Sex: Male

DRUGS (4)
  1. COREG [Suspect]
     Indication: CARDIAC FAILURE CONGESTIVE
     Dosage: 1TAB TWICE PER DAY
     Route: 048
  2. ALTACE [Concomitant]
  3. MULTI-VITAMIN [Concomitant]
  4. TRICOR [Concomitant]

REACTIONS (3)
  - DIZZINESS [None]
  - EXTRASYSTOLES [None]
  - WEIGHT INCREASED [None]
